FAERS Safety Report 6965409-0 (Version None)
Quarter: 2010Q3

REPORT INFORMATION
  Report Type: 
  Country: None (occurrence: None)
  Receive Date: 20100903
  Receipt Date: 20100825
  Transmission Date: 20110219
  Serious: Yes (Hospitalization)
  Sender: FDA-Public Use
  Company Number: A0878979A

PATIENT
  Age: 65 Year
  Sex: Male

DRUGS (2)
  1. AVANDIA [Suspect]
     Dates: start: 20030101, end: 20060101
  2. AVANDAMET [Suspect]
     Dosage: 1TAB PER DAY
     Dates: start: 20070101, end: 20080101

REACTIONS (1)
  - MYOCARDIAL INFARCTION [None]
